FAERS Safety Report 6038387-9 (Version None)
Quarter: 2009Q1

REPORT INFORMATION
  Report Type: 
  Country: None (occurrence: None)
  Receive Date: 20090115
  Receipt Date: 20081217
  Transmission Date: 20090719
  Serious: No
  Sender: FDA-Public Use
  Company Number: US-BAYER-200814570BCC

PATIENT
  Age: 20 Year
  Sex: Female
  Weight: 57 kg

DRUGS (2)
  1. ALEVE [Suspect]
     Indication: SELF INJURIOUS BEHAVIOUR
     Dosage: TOTAL DAILY DOSE: 6600 MG  UNIT DOSE: 220 MG
     Route: 048
     Dates: start: 20081123, end: 20081123
  2. ALEVE [Suspect]

REACTIONS (2)
  - HEADACHE [None]
  - VOMITING [None]
